FAERS Safety Report 5611503-6 (Version None)
Quarter: 2008Q1

REPORT INFORMATION
  Report Type: 
  Country: None (occurrence: None)
  Receive Date: 20080201
  Receipt Date: 20080122
  Transmission Date: 20080703
  Serious: Yes (Other)
  Sender: FDA-Public Use
  Company Number: US-PFIZER INC-2008006782

PATIENT
  Sex: Male

DRUGS (1)
  1. VIAGRA [Suspect]

REACTIONS (1)
  - VISUAL DISTURBANCE [None]
